FAERS Safety Report 4873887-6 (Version None)
Quarter: 2006Q1

REPORT INFORMATION
  Report Type: 
  Country: None (occurrence: None)
  Receive Date: 20060105
  Receipt Date: 20060105
  Transmission Date: 20060701
  Serious: Yes (Hospitalization)
  Sender: FDA-Public Use
  Company Number: None

PATIENT
  Age: 39 Year
  Weight: 82.1011 kg

DRUGS (2)
  1. TAXOL [Suspect]
     Indication: OVARIAN CANCER
     Dosage: 350 MG IV Q 21 DAYS
     Route: 042
     Dates: start: 20051208
  2. CARBOPLATIN [Suspect]
     Indication: OVARIAN CANCER
     Dosage: ANC 6 IV Q 21 DAYS
     Route: 042

REACTIONS (1)
  - PULMONARY EMBOLISM [None]
